FAERS Safety Report 4389900-9 (Version None)
Quarter: 2004Q2

REPORT INFORMATION
  Report Type: 
  Country: None (occurrence: None)
  Receive Date: 20040630
  Receipt Date: 20040630
  Transmission Date: 20050107
  Serious: Yes (Life-Threatening)
  Sender: FDA-Public Use
  Company Number: None

PATIENT
  Age: 4 Month
  Sex: Male
  Weight: 87.9978 kg

DRUGS (6)
  1. ENBREL [Suspect]
     Indication: RHEUMATOID ARTHRITIS
     Dosage: BI-WEEKLY
     Dates: start: 20030101, end: 20040518
  2. ENBREL [Suspect]
     Indication: RHEUMATOID ARTHRITIS
     Dosage: BI-WEEKLY
     Dates: start: 20040502, end: 20040526
  3. PREDNISONE [Concomitant]
  4. HUMULIN 70/30 [Concomitant]
  5. PREVACID [Concomitant]
  6. CELEBREX [Concomitant]

REACTIONS (9)
  - COUGH [None]
  - DIABETES MELLITUS [None]
  - DYSPNOEA EXERTIONAL [None]
  - FATIGUE [None]
  - IMPAIRED HEALING [None]
  - OPEN WOUND [None]
  - PAIN [None]
  - SKIN INFECTION [None]
  - STRESS SYMPTOMS [None]
